FAERS Safety Report 9271495 (Version 3)
Quarter: 2013Q3

REPORT INFORMATION
  Report Type: Spontaneous
  Country: US (occurrence: US)
  Receive Date: 20130506
  Receipt Date: 20130709
  Transmission Date: 20140515
  Serious: No
  Sender: FDA-Public Use
  Company Number: US-PFIZER INC-2013136604

PATIENT
  Age: 74 Year
  Sex: Female
  Weight: 86.17 kg

DRUGS (20)
  1. PANTOPRAZOLE [Suspect]
     Indication: ABDOMINAL DISCOMFORT
     Dosage: 40 MG, 1X/DAY
     Route: 048
     Dates: start: 20130411
  2. LISINOPRIL [Concomitant]
     Dosage: 20 MG, 1X/DAY
     Route: 048
     Dates: start: 20121029
  3. NEURONTIN [Concomitant]
     Dosage: 1 DF, 2X/DAY
     Dates: start: 20120615
  4. PROZAC [Concomitant]
     Dosage: 20 MG, 1X/DAY
     Route: 048
     Dates: start: 20130517
  5. CRESTOR [Concomitant]
     Dosage: 1 DF, DAILY
     Route: 048
     Dates: start: 20090911
  6. CRESTOR [Concomitant]
     Dosage: 5 MG, DAILY
     Route: 048
     Dates: start: 20130322
  7. SINGULAIR [Concomitant]
     Dosage: 10 MG, 1X/DAY
     Route: 048
     Dates: start: 20130517
  8. WARFARIN [Concomitant]
     Dosage: 0.5-1 TAB DAILY AS DIRECTED
     Route: 048
     Dates: start: 20121221
  9. ACYCLOVIR [Concomitant]
     Indication: ORAL HERPES
     Dosage: 400 MG, QID FOR 5 DAYS AS NEEDED
     Route: 048
     Dates: start: 20121102
  10. ALBUTEROL SULFATE [Concomitant]
     Dosage: 90 UG, EVERY 4-6 HOURS AS NEEDED
     Dates: start: 20120905
  11. B COMPLEX [Concomitant]
     Dosage: UNK
     Dates: start: 20100320
  12. CLARINEX [Concomitant]
     Dosage: 5 MG, DAILY
     Route: 048
     Dates: start: 20091215
  13. DULCOLAX [Concomitant]
     Indication: CONSTIPATION
     Dosage: 5 MG, IF NEEDED
     Route: 048
     Dates: start: 20121022
  14. LIDODERM TOPICAL ADHESIVE PATCH, MEDICATED 5% [Concomitant]
     Dosage: 700 MG/PATCH, APPLY ONE OR TWO PATCHES EXTERNALLY DAILY FOR UPTO 12H ON, 12H OFF
     Route: 061
     Dates: start: 20130325
  15. LIDODERM PATCH [Concomitant]
     Dosage: 3 PTCH TOP DAILY
     Route: 061
     Dates: start: 20091211
  16. MIRALAX [Concomitant]
     Dosage: 15 MILLILITRES (17 GRAM) POWDER ONCE DAILY TO TWICE DAILY
     Route: 048
     Dates: start: 20110120
  17. LOVAZA [Concomitant]
     Dosage: 2000 MG, 2X/DAY
     Route: 048
     Dates: start: 20100320
  18. OS-CAL500+ D ORAL [Concomitant]
     Dosage: UNK
  19. VERAMYST [Concomitant]
     Dosage: 55 UG, AS NEEDED
     Route: 045
     Dates: start: 20130424
  20. ZOFRAN [Concomitant]
     Indication: NAUSEA
     Dosage: 4 MG, AS NEEDED
     Route: 048
     Dates: start: 20121203

REACTIONS (1)
  - Drug ineffective [Unknown]
